FAERS Safety Report 20571529 (Version 2)
Quarter: 2022Q2

REPORT INFORMATION
  Report Type: Spontaneous
  Country: US (occurrence: US)
  Receive Date: 20220309
  Receipt Date: 20220404
  Transmission Date: 20220721
  Serious: No
  Sender: FDA-Public Use
  Company Number: US-SA-SAC20220303000339

PATIENT
  Age: 29 Year
  Sex: Male

DRUGS (1)
  1. DUPIXENT [Suspect]
     Active Substance: DUPILUMAB
     Indication: Dermatitis contact
     Dosage: 300 MG, QOW
     Route: 058
     Dates: start: 20211015

REACTIONS (4)
  - Erythema [Unknown]
  - Periorbital swelling [Unknown]
  - Sensitisation [Unknown]
  - Product use in unapproved indication [Unknown]
